FAERS Safety Report 5932719-5 (Version None)
Quarter: 2008Q4

REPORT INFORMATION
  Report Type: 
  Country: None (occurrence: None)
  Receive Date: 20081028
  Receipt Date: 20081016
  Transmission Date: 20090506
  Serious: Yes (Death)
  Sender: FDA-Public Use
  Company Number: US-WYE-H05955808

PATIENT
  Sex: Male

DRUGS (7)
  1. PRISTIQ [Suspect]
     Indication: MAJOR DEPRESSION
     Dates: start: 20080707, end: 20080803
  2. PRISTIQ [Suspect]
     Dates: start: 20080804
  3. PRISTIQ [Suspect]
     Dates: start: 20080801
  4. IMIPRAMINE [Concomitant]
     Indication: INSOMNIA
     Dosage: 50 MG TAB, HS PRN IRREGULAR USE
  5. ATIVAN [Concomitant]
     Indication: ANXIETY
     Dosage: 1 MG TAB, 1-2 TABS DAY PRN, OCCASIONAL USE
  6. ATIVAN [Concomitant]
     Indication: PANIC DISORDER
  7. ESZOPICLONE [Concomitant]
     Indication: INSOMNIA
     Dosage: 2 MG TABS, 1-2 PRN, IRREGULAR USE

REACTIONS (4)
  - ABNORMAL BEHAVIOUR [None]
  - COMPLETED SUICIDE [None]
  - GUN SHOT WOUND [None]
  - NONSPECIFIC REACTION [None]
